FAERS Safety Report 16320377 (Version 1)
Quarter: 2019Q2

REPORT INFORMATION
  Report Type: Spontaneous
  Country: US (occurrence: US)
  Receive Date: 20190410
  Receipt Date: 20190410
  Transmission Date: 20190711
  Serious: Yes (Hospitalization)
  Sender: FDA-Public Use
  Company Number: None

PATIENT
  Sex: Male

DRUGS (7)
  1. ACTOS [Concomitant]
     Active Substance: PIOGLITAZONE HYDROCHLORIDE
  2. GLUCOTROL [Concomitant]
     Active Substance: GLIPIZIDE
  3. IBUPROFEN. [Concomitant]
     Active Substance: IBUPROFEN
  4. ESBRIET [Suspect]
     Active Substance: PIRFENIDONE
     Indication: IDIOPATHIC PULMONARY FIBROSIS
     Route: 048
  5. ALTACE [Concomitant]
     Active Substance: RAMIPRIL
  6. SIMVASTATIN. [Concomitant]
     Active Substance: SIMVASTATIN
  7. STIOLTO RESPIMAT [Concomitant]
     Active Substance: OLODATEROL HYDROCHLORIDE\TIOTROPIUM BROMIDE MONOHYDRATE

REACTIONS (2)
  - Hospitalisation [None]
  - Therapy cessation [None]
